FAERS Safety Report 21921164 (Version 1)
Quarter: 2023Q1

REPORT INFORMATION
  Report Type: Spontaneous
  Country: US (occurrence: None)
  Receive Date: 20230127
  Receipt Date: 20230127
  Transmission Date: 20230417
  Serious: Yes (Hospitalization, Disabling)
  Sender: FDA-Public Use
  Company Number: None

PATIENT
  Sex: 0

DRUGS (1)
  1. VANCOMYCIN [Suspect]
     Active Substance: VANCOMYCIN
     Dosage: FREQUENCY : DAILY;?
     Route: 041
     Dates: start: 20221219, end: 20221227

REACTIONS (8)
  - Deafness [None]
  - Nephropathy toxic [None]
  - Antibiotic level above therapeutic [None]
  - Paradoxical drug reaction [None]
  - Blood creatinine increased [None]
  - Oliguria [None]
  - Injury [None]
  - Dialysis [None]

NARRATIVE: CASE EVENT DATE: 20221228
